FAERS Safety Report 4350431-3 (Version None)
Quarter: 2004Q2

REPORT INFORMATION
  Report Type: 
  Country: None (occurrence: None)
  Receive Date: 20040427
  Receipt Date: 20040330
  Transmission Date: 20050107
  Serious: Yes (Death, Hospitalization)
  Sender: FDA-Public Use
  Company Number: 7854

PATIENT
  Age: 63 Year
  Sex: Female

DRUGS (4)
  1. LEUCOVORIN CALCIUM [Suspect]
     Indication: COLORECTAL CANCER
     Dosage: 500MG/M2 IV
     Route: 042
     Dates: start: 20030509
  2. FLUOROURACIL [Suspect]
     Indication: COLORECTAL CANCER
     Dosage: 300MG/M2 IV
     Route: 042
     Dates: start: 20030509
  3. CETUXIMAB [Suspect]
     Indication: COLORECTAL CANCER
     Dosage: 250MG/M2 IV
     Route: 042
     Dates: start: 20030509
  4. OXALIPLATIN [Suspect]
     Indication: COLORECTAL CANCER
     Dosage: 65MG/M2 IV
     Route: 042
     Dates: start: 20030509

REACTIONS (12)
  - CACHEXIA [None]
  - COLORECTAL CANCER METASTATIC [None]
  - NEOPLASM PROGRESSION [None]
  - NEUTROPHIL COUNT DECREASED [None]
  - OVARIAN ADENOMA [None]
  - PALPITATIONS [None]
  - PNEUMONITIS [None]
  - PULMONARY EMBOLISM [None]
  - PULMONARY HYPERTENSION [None]
  - RENAL INFARCT [None]
  - RESPIRATORY DISTRESS [None]
  - SPLENIC INFARCTION [None]
